FAERS Safety Report 10576872 (Version 1)
Quarter: 2014Q4

REPORT INFORMATION
  Report Type: Spontaneous
  Country: FR (occurrence: FR)
  Receive Date: 20141111
  Receipt Date: 20141111
  Transmission Date: 20150529
  Serious: Yes (Life-Threatening, Hospitalization, Other)
  Sender: FDA-Public Use
  Company Number: FR-PFIZER INC-2014308989

PATIENT
  Age: 34 Year
  Sex: Female
  Weight: 66 kg

DRUGS (28)
  1. CLAIRYG [Suspect]
     Active Substance: HUMAN IMMUNOGLOBULIN G
     Dosage: 40 G, SINGLE
     Route: 041
     Dates: start: 20141017, end: 20141017
  2. LASILIX [Concomitant]
     Active Substance: FUROSEMIDE
     Dosage: BETWEEN 40 AND 80 MG DAILY
     Route: 042
     Dates: start: 20141003
  3. PLAQUENIL [Concomitant]
     Active Substance: HYDROXYCHLOROQUINE SULFATE
     Dosage: 400 MG, 1X/DAY
     Route: 048
     Dates: start: 20141004
  4. TRIATEC [Concomitant]
     Active Substance: RAMIPRIL
     Dosage: 2.5 MG, DAILY
     Dates: start: 20141017
  5. LASILIX [Concomitant]
     Active Substance: FUROSEMIDE
     Dosage: BETWEEN 40 AND 80 MG DAILY
     Route: 048
  6. ACUPAN [Concomitant]
     Active Substance: NEFOPAM HYDROCHLORIDE
     Dosage: UNK
     Dates: start: 20141008, end: 20141009
  7. CALCIPARINE [Concomitant]
     Active Substance: HEPARIN CALCIUM
     Dosage: 5000 TO 10 000 IU DAILY
     Route: 058
     Dates: start: 20141004, end: 20141013
  8. UVEDOSE [Concomitant]
     Active Substance: CHOLECALCIFEROL
     Dosage: 100000 IU, SINGLE
     Route: 048
     Dates: start: 20141009, end: 20141009
  9. SOLU-MEDROL [Suspect]
     Active Substance: METHYLPREDNISOLONE SODIUM SUCCINATE
     Indication: SYSTEMIC LUPUS ERYTHEMATOSUS
     Dosage: 900 MG, 1X/DAY
     Route: 041
     Dates: start: 20141003, end: 20141005
  10. ENDOXAN [Suspect]
     Active Substance: CYCLOPHOSPHAMIDE
     Indication: SYSTEMIC LUPUS ERYTHEMATOSUS
     Dosage: 500 MG, SINGLE
     Route: 042
     Dates: start: 20141007, end: 20141007
  11. INEXIUM /01479302/ [Suspect]
     Active Substance: ESOMEPRAZOLE MAGNESIUM
     Dosage: 40 MG, 1X/DAY
     Route: 048
     Dates: start: 20141003
  12. CONTRAMAL [Suspect]
     Active Substance: TRAMADOL HYDROCHLORIDE
     Dosage: 100 MG TO 200 MG DAILY
     Route: 048
     Dates: start: 20141013, end: 20141018
  13. DOLITABS [Concomitant]
     Indication: PAIN
     Dosage: 1 TO 2 G A DAY
     Route: 060
     Dates: start: 20141004, end: 20141018
  14. INFLUVAC [Concomitant]
     Active Substance: INFLUENZA VIRUS VACCINE
     Indication: IMMUNISATION
     Dosage: 1 DF, SINGLE
     Dates: start: 20141009, end: 20141009
  15. ACUPAN [Concomitant]
     Active Substance: NEFOPAM HYDROCHLORIDE
     Dosage: UNK
  16. NEXPLANON [Concomitant]
     Active Substance: ETONOGESTREL
     Indication: CONTRACEPTION
     Dosage: UNK
  17. ZELITREX [Concomitant]
     Active Substance: VALACYCLOVIR HYDROCHLORIDE
     Dosage: 500 MG, 2X/DAY
     Route: 048
     Dates: start: 20141011, end: 20141018
  18. CORTANCYL [Concomitant]
     Active Substance: PREDNISONE
     Dosage: 60 MG, DAILY
     Route: 048
     Dates: start: 20141007
  19. FOLIC ACID. [Concomitant]
     Active Substance: FOLIC ACID
     Dosage: 10 MG, 1X/DAY
     Route: 048
     Dates: start: 20141004
  20. BICARBONATE SODIUM [Concomitant]
     Dosage: 1 G, 3X/DAY
     Dates: start: 20141004, end: 20141015
  21. CLAIRYG [Suspect]
     Active Substance: HUMAN IMMUNOGLOBULIN G
     Dosage: 25 G, SINGLE
     Route: 041
     Dates: start: 20141016, end: 20141016
  22. TRIATEC [Concomitant]
     Active Substance: RAMIPRIL
     Dosage: 1.25 MG, DAILY
     Route: 048
     Dates: start: 20111009, end: 20141016
  23. PREVENAR-13 [Concomitant]
     Indication: IMMUNISATION
     Dosage: 1 DF, SINGLE
     Dates: start: 20141009, end: 20141009
  24. BACTRIM [Concomitant]
     Active Substance: SULFAMETHOXAZOLE\TRIMETHOPRIM
     Dosage: UNK
     Route: 048
     Dates: start: 20141008, end: 20141009
  25. CORTANCYL [Concomitant]
     Active Substance: PREDNISONE
     Dosage: 10 MG, DAILY
     Route: 048
     Dates: start: 20141010
  26. LOVENOX [Concomitant]
     Active Substance: ENOXAPARIN SODIUM
     Dosage: 40 MG, 1X/DAY
     Route: 058
     Dates: start: 20141016, end: 20141017
  27. ACUPAN [Concomitant]
     Active Substance: NEFOPAM HYDROCHLORIDE
     Dosage: UNK
     Dates: start: 20141011
  28. CEFOTAXIME [Concomitant]
     Active Substance: CEFOTAXIME\CEFOTAXIME SODIUM
     Dosage: UNK
     Route: 042
     Dates: start: 20141004, end: 20141009

REACTIONS (10)
  - Stress cardiomyopathy [Recovering/Resolving]
  - Encephalopathy [Recovered/Resolved]
  - Transaminases increased [Recovering/Resolving]
  - Cardiogenic shock [Recovering/Resolving]
  - Cardiac failure [Recovering/Resolving]
  - Generalised oedema [Recovered/Resolved]
  - Vomiting [Recovered/Resolved]
  - Low cardiac output syndrome [Recovering/Resolving]
  - Hepatic function abnormal [Recovered/Resolved]
  - Acute kidney injury [Unknown]

NARRATIVE: CASE EVENT DATE: 20141017
